FAERS Safety Report 19636729 (Version 1)
Quarter: 2021Q3

REPORT INFORMATION
  Report Type: Spontaneous
  Country: GB (occurrence: GB)
  Receive Date: 20210730
  Receipt Date: 20210730
  Transmission Date: 20211014
  Serious: Yes (Other)
  Sender: FDA-Public Use
  Company Number: GB-ACCORD-233325

PATIENT
  Age: 44 Year
  Sex: Female
  Weight: 87 kg

DRUGS (7)
  1. CERELLE [Concomitant]
     Active Substance: DESOGESTREL
     Dosage: AT THE SAME TIME EACH DAY.
     Dates: start: 20191202
  2. AMLODIPINE [Suspect]
     Active Substance: AMLODIPINE BESYLATE
     Indication: PRODUCT USED FOR UNKNOWN INDICATION
     Route: 048
     Dates: start: 20201106
  3. FLUCLOXACILLIN [Concomitant]
     Active Substance: FLUCLOXACILLIN
     Dates: start: 20210604, end: 20210611
  4. LOSARTAN. [Concomitant]
     Active Substance: LOSARTAN
     Dates: start: 20201106
  5. EPIPEN [Concomitant]
     Active Substance: EPINEPHRINE
     Dosage: USE AS DIRECTED.
     Dates: start: 20200615
  6. CODEINE [Concomitant]
     Active Substance: CODEINE
     Dosage: ONE OR TWO TO BE TAKEN EVERY FOUR HOURS WHEN NE...
     Dates: start: 20210507, end: 20210521
  7. DIHYDROCODEINE [Concomitant]
     Active Substance: DIHYDROCODEINE
     Dosage: 30?60MG FOUR TIMES DAILY
     Dates: start: 20210506, end: 20210513

REACTIONS (1)
  - Pharyngeal swelling [Recovering/Resolving]
